FAERS Safety Report 14090586 (Version 1)
Quarter: 2017Q4

REPORT INFORMATION
  Report Type: Spontaneous
  Country: AU (occurrence: AU)
  Receive Date: 20171015
  Receipt Date: 20171015
  Transmission Date: 20180321
  Serious: Yes (Other)
  Sender: FDA-Public Use
  Company Number: AU-TERSERA THERAPEUTICS, LLC-2030147

PATIENT
  Sex: Female

DRUGS (2)
  1. ARIMIDEX [Suspect]
     Active Substance: ANASTROZOLE
     Route: 048
  2. ZOLADEX [Suspect]
     Active Substance: GOSERELIN ACETATE
     Indication: OESTROGEN RECEPTOR POSITIVE BREAST CANCER
     Route: 058
     Dates: start: 2015

REACTIONS (3)
  - Metastases to bone [Unknown]
  - Metastases to liver [Unknown]
  - Metastatic neoplasm [Unknown]
